FAERS Safety Report 21807427 (Version 1)
Quarter: 2023Q1

REPORT INFORMATION
  Report Type: Report from Study
  Country: US (occurrence: None)
  Receive Date: 20230102
  Receipt Date: 20230102
  Transmission Date: 20230418
  Serious: Yes (Death)
  Sender: FDA-Public Use
  Company Number: 2023A000277

PATIENT
  Age: 18715 Day
  Sex: Female
  Weight: 65.8 kg

DRUGS (1)
  1. TAGRISSO [Suspect]
     Active Substance: OSIMERTINIB
     Indication: Non-small cell lung cancer stage IV
     Route: 048
     Dates: start: 20220323

REACTIONS (1)
  - Death [Fatal]

NARRATIVE: CASE EVENT DATE: 20221228
